FAERS Safety Report 21393449 (Version 1)
Quarter: 2022Q3

REPORT INFORMATION
  Report Type: Spontaneous
  Country: JP (occurrence: JP)
  Receive Date: 20220929
  Receipt Date: 20220929
  Transmission Date: 20221026
  Serious: Yes (Death, Other)
  Sender: FDA-Public Use
  Company Number: JP-JAZZ-2022-JP-031050

PATIENT
  Age: 59 Year
  Sex: Male
  Weight: 62.2 kg

DRUGS (9)
  1. DEFITELIO [Suspect]
     Active Substance: DEFIBROTIDE SODIUM
     Indication: Venoocclusive liver disease
     Dosage: 12.5 MILLIGRAM/KILOGRAM/24 HOURS
     Route: 042
     Dates: start: 20211231, end: 20211231
  2. DEFITELIO [Suspect]
     Active Substance: DEFIBROTIDE SODIUM
     Dosage: 25 MILLIGRAM/KILOGRAM/24 HOURS
     Route: 042
     Dates: start: 20220101, end: 20220101
  3. DEFITELIO [Suspect]
     Active Substance: DEFIBROTIDE SODIUM
     Dosage: 6.2 MILLIGRAM/KILOGRAM/24 HOURS
     Route: 042
     Dates: start: 20220102, end: 20220102
  4. DEFITELIO [Suspect]
     Active Substance: DEFIBROTIDE SODIUM
     Dosage: 12.5 MILLIGRAM/KILOGRAM/24 HOURS
     Route: 042
     Dates: start: 20220103, end: 20220103
  5. DEFITELIO [Suspect]
     Active Substance: DEFIBROTIDE SODIUM
     Dosage: 25 MILLIGRAM/KILOGRAM/24 HOURS
     Route: 042
     Dates: start: 20220104, end: 20220105
  6. DEFITELIO [Suspect]
     Active Substance: DEFIBROTIDE SODIUM
     Dosage: 12.5 MILLIGRAM/KILOGRAM/24 HOURS
     Route: 042
     Dates: start: 20220106, end: 20220106
  7. DEFITELIO [Suspect]
     Active Substance: DEFIBROTIDE SODIUM
     Dosage: 6.25 MILLIGRAM/KILOGRAM/24 HOURS
     Route: 042
     Dates: start: 20220113, end: 20220113
  8. DEFITELIO [Suspect]
     Active Substance: DEFIBROTIDE SODIUM
     Dosage: 25 MILLIGRAM/KILOGRAM/24 HOURS
     Route: 042
     Dates: start: 20220114, end: 20220117
  9. DEFITELIO [Suspect]
     Active Substance: DEFIBROTIDE SODIUM
     Dosage: 18.75 MILLIGRAM/KILOGRAM/24 HOURS
     Route: 042
     Dates: start: 20220118, end: 20220118

REACTIONS (5)
  - Venoocclusive liver disease [Fatal]
  - Melaena [Recovered/Resolved]
  - Melaena [Recovered/Resolved]
  - Hypotension [Recovered/Resolved]
  - Hypotension [Recovered/Resolved]

NARRATIVE: CASE EVENT DATE: 20211230
